FAERS Safety Report 17217485 (Version 1)
Quarter: 2019Q4

REPORT INFORMATION
  Report Type: Spontaneous
  Country: DE (occurrence: DE)
  Receive Date: 20191231
  Receipt Date: 20191231
  Transmission Date: 20200122
  Serious: Yes (Hospitalization)
  Sender: FDA-Public Use
  Company Number: DE-TEVA-2019-DE-1159780

PATIENT
  Age: 82 Year
  Sex: Male

DRUGS (9)
  1. RIVASTIGMIN [Concomitant]
     Active Substance: RIVASTIGMINE
     Dosage: 4.6 MILLIGRAM DAILY;
  2. METOPROLOL. [Concomitant]
     Active Substance: METOPROLOL
     Dosage: 23.75 MILLIGRAM DAILY;
  3. SIMVASTATIN. [Concomitant]
     Active Substance: SIMVASTATIN
     Dosage: 40 MILLIGRAM DAILY;
  4. QUETIAPIN [Suspect]
     Active Substance: QUETIAPINE
     Dosage: 25 MG, 0-0-1-1
  5. BETAHISTIN [Concomitant]
     Active Substance: BETAHISTINE
     Dosage: 12MG EVERY 12 HOURS
  6. BENSERAZIDE/LEVODOPA [Concomitant]
     Active Substance: BENSERAZIDE\LEVODOPA
     Dosage: 100|25 MG, 0-0-0-1
  7. BENSERAZIDE/LEVODOPA [Concomitant]
     Active Substance: BENSERAZIDE\LEVODOPA
     Dosage: 100|25 MG, 5X
  8. METFORMIN [Concomitant]
     Active Substance: METFORMIN HYDROCHLORIDE
     Dosage: 1000 MG, 1-0-1-0
  9. ACETYLSALICYLSAEURE [Suspect]
     Active Substance: ASPIRIN
     Dosage: 100 MILLIGRAM DAILY;

REACTIONS (5)
  - Aspiration [Unknown]
  - Pallor [Unknown]
  - General physical health deterioration [Unknown]
  - Anaemia [Unknown]
  - Dehydration [Unknown]
